FAERS Safety Report 14613984 (Version 1)
Quarter: 2018Q1

REPORT INFORMATION
  Report Type: Spontaneous
  Country: GB (occurrence: GB)
  Receive Date: 20180308
  Receipt Date: 20180308
  Transmission Date: 20180509
  Serious: Yes (Other)
  Sender: FDA-Public Use
  Company Number: GB-ELI_LILLY_AND_COMPANY-GB201802011921

PATIENT
  Age: 39 Year
  Sex: Male
  Weight: 106.58 kg

DRUGS (1)
  1. TRULICITY [Suspect]
     Active Substance: DULAGLUTIDE
     Indication: DIABETES MELLITUS
     Dosage: 0.75 MG, UNKNOWN
     Route: 051
     Dates: start: 20180103

REACTIONS (2)
  - Headache [Not Recovered/Not Resolved]
  - Incorrect route of drug administration [Unknown]
